FAERS Safety Report 8127243-8 (Version None)
Quarter: 2012Q1

REPORT INFORMATION
  Report Type: 
  Country: None (occurrence: None)
  Receive Date: 20120210
  Receipt Date: 20120207
  Transmission Date: 20120608
  Serious: Yes (Hospitalization, Other)
  Sender: FDA-Public Use
  Company Number: US-BAYER-2011-103428

PATIENT
  Age: 49 Year
  Sex: Male

DRUGS (3)
  1. INTERFERON BETA-1B [Suspect]
     Dosage: 8 MIU, QOD
     Route: 058
     Dates: start: 20111014, end: 20111220
  2. ANALGESICS [Suspect]
     Dosage: PAIN PATCH
     Route: 062
  3. INTERFERON BETA-1B [Suspect]
     Indication: MULTIPLE SCLEROSIS
     Dosage: UNK
     Route: 058
     Dates: start: 20110721, end: 20111010

REACTIONS (22)
  - ABDOMINAL MASS [None]
  - DYSARTHRIA [None]
  - MEMORY IMPAIRMENT [None]
  - ARTHRALGIA [None]
  - ABDOMINAL PAIN [None]
  - TREMOR [None]
  - DEPRESSION [None]
  - HEPATIC ENZYME INCREASED [None]
  - CHILLS [None]
  - FATIGUE [None]
  - GALLBLADDER DISORDER [None]
  - FEELING HOT [None]
  - DIARRHOEA [None]
  - APHAGIA [None]
  - ENTERITIS INFECTIOUS [None]
  - HEADACHE [None]
  - NAUSEA [None]
  - DIZZINESS [None]
  - PANCREATITIS [None]
  - GALLBLADDER PAIN [None]
  - ABDOMINAL PAIN UPPER [None]
  - CONFUSIONAL STATE [None]
